FAERS Safety Report 5861302-5 (Version None)
Quarter: 2008Q3

REPORT INFORMATION
  Report Type: 
  Country: None (occurrence: None)
  Receive Date: 20080827
  Receipt Date: 20080410
  Transmission Date: 20090109
  Serious: No
  Sender: FDA-Public Use
  Company Number: US-ABBOTT-08P-163-0446460-00

PATIENT
  Sex: Female
  Weight: 59.928 kg

DRUGS (4)
  1. COATED PDS [Suspect]
     Indication: HIGH DENSITY LIPOPROTEIN DECREASED
     Route: 048
     Dates: start: 20080330
  2. AMLODIPINE [Concomitant]
     Indication: HYPERTENSION
     Dosage: 5/20 ONE TABLET DAILY
     Route: 048
  3. FLUOXETINE HYDROCHLORIDE [Concomitant]
     Indication: DRUG USE FOR UNKNOWN INDICATION
     Route: 048
  4. NARINE [Concomitant]
     Indication: SEASONAL ALLERGY
     Route: 048

REACTIONS (1)
  - POOR QUALITY SLEEP [None]
